FAERS Safety Report 7408530-5 (Version None)
Quarter: 2011Q2

REPORT INFORMATION
  Report Type: 
  Country: None (occurrence: None)
  Receive Date: 20110412
  Receipt Date: 20110408
  Transmission Date: 20111010
  Serious: Yes (Death, Other)
  Sender: FDA-Public Use
  Company Number: SG-PFIZER INC-2011078483

PATIENT
  Age: 20 Year
  Sex: Male

DRUGS (6)
  1. SERTRALINE HYDROCHLORIDE [Suspect]
  2. XANAX [Suspect]
  3. GAMMA HYDROXYBUTYRATE [Suspect]
  4. OXYCONTIN [Suspect]
     Route: 048
  5. ZOLPIDEM [Suspect]
  6. ALCOHOL [Suspect]

REACTIONS (1)
  - TOXICITY TO VARIOUS AGENTS [None]
